FAERS Safety Report 21948800 (Version 1)
Quarter: 2023Q1

REPORT INFORMATION
  Report Type: Spontaneous
  Country: US (occurrence: US)
  Receive Date: 20230203
  Receipt Date: 20230203
  Transmission Date: 20230418
  Serious: Yes (Hospitalization)
  Sender: FDA-Public Use
  Company Number: US-AVET LIFESCIENCES LTD-2023-AVET-000026

PATIENT
  Age: 20 Year
  Sex: Male

DRUGS (7)
  1. SULFAMETHOXAZOLE\TRIMETHOPRIM [Suspect]
     Active Substance: SULFAMETHOXAZOLE\TRIMETHOPRIM
     Indication: Prophylaxis
     Dosage: UNK
  2. EMAPALUMAB [Concomitant]
     Active Substance: EMAPALUMAB
     Indication: Prophylaxis
     Dosage: UNK, 2 DOSE PER 1W
  3. METHYLPREDNISOLONE [Concomitant]
     Active Substance: METHYLPREDNISOLONE
     Dosage: 1000 MILLIGRAM, QD
     Route: 042
  4. METHYLPREDNISOLONE [Concomitant]
     Active Substance: METHYLPREDNISOLONE
     Dosage: 1000 MILLIGRAM, QD
     Route: 042
  5. ACYCLOVIR [Concomitant]
     Active Substance: ACYCLOVIR
     Indication: Antiviral prophylaxis
     Dosage: UNK
  6. CANAKINUMAB [Concomitant]
     Active Substance: CANAKINUMAB
     Dosage: UNK, 1 DOSE PER 4W
  7. PREDNISONE [Concomitant]
     Active Substance: PREDNISONE
     Dosage: 60 MILLIGRAM, BID

REACTIONS (1)
  - Haemophagocytic lymphohistiocytosis [Recovering/Resolving]
